FAERS Safety Report 11700676 (Version 1)
Quarter: 2015Q4

REPORT INFORMATION
  Report Type: Spontaneous
  Country: US (occurrence: None)
  Receive Date: 20151104
  Receipt Date: 20151104
  Transmission Date: 20160304
  Serious: Yes (Life-Threatening, Hospitalization)
  Sender: FDA-Public Use
  Company Number: None

PATIENT
  Age: 57 Year
  Sex: Male
  Weight: 102 kg

DRUGS (2)
  1. IBRUTINIB [Suspect]
     Active Substance: IBRUTINIB
     Route: 048
  2. ACYCLOVIR. [Concomitant]
     Active Substance: ACYCLOVIR

REACTIONS (7)
  - Waldenstrom^s macroglobulinaemia [None]
  - Palpitations [None]
  - Cardiogenic shock [None]
  - Ventricular fibrillation [None]
  - Cardiac arrest [None]
  - Dizziness [None]
  - Cardiomyopathy [None]

NARRATIVE: CASE EVENT DATE: 20130811
